FAERS Safety Report 5314969-4 (Version None)
Quarter: 2007Q2

REPORT INFORMATION
  Report Type: 
  Country: None (occurrence: None)
  Receive Date: 20070502
  Receipt Date: 20070419
  Transmission Date: 20071010
  Serious: Yes (Hospitalization)
  Sender: FDA-Public Use
  Company Number: US-ELI_LILLY_AND_COMPANY-US200704004471

PATIENT
  Age: 28 Year
  Sex: Female
  Weight: 77 kg

DRUGS (4)
  1. CYMBALTA [Suspect]
     Indication: FIBROMYALGIA
     Dosage: 20 MG, DAILY (1/D)
     Route: 048
     Dates: start: 20070112, end: 20070216
  2. VICODIN [Concomitant]
     Indication: PAIN
     Dosage: 1 UNK, EVERY 4 HRS
  3. HYDROXYCHLOROQUINE PHOSPHATE [Concomitant]
  4. TRAZODONE HCL [Concomitant]
     Dosage: UNK, AS NEEDED

REACTIONS (2)
  - HEPATIC NECROSIS [None]
  - HEPATITIS [None]
